FAERS Safety Report 24759502 (Version 1)
Quarter: 2024Q4

REPORT INFORMATION
  Report Type: Report from Study
  Country: CA (occurrence: CA)
  Receive Date: 20241220
  Receipt Date: 20241220
  Transmission Date: 20250114
  Serious: Yes (Other)
  Sender: JOHNSON AND JOHNSON
  Company Number: CA-JNJFOC-20241238810

PATIENT
  Age: 41 Year
  Sex: Female
  Weight: 92 kg

DRUGS (3)
  1. REMICADE [Suspect]
     Active Substance: INFLIXIMAB
     Indication: Colitis ulcerative
     Route: 041
     Dates: start: 20230113
  2. REMICADE [Suspect]
     Active Substance: INFLIXIMAB
     Route: 041
  3. HYDROMORPHONE [Concomitant]
     Active Substance: HYDROMORPHONE
     Indication: Pain management

REACTIONS (2)
  - Salpingo-oophorectomy [Unknown]
  - Fatigue [Unknown]

NARRATIVE: CASE EVENT DATE: 20241212
